FAERS Safety Report 4504962-3 (Version None)
Quarter: 2004Q4

REPORT INFORMATION
  Report Type: 
  Country: None (occurrence: None)
  Receive Date: 20041020
  Receipt Date: 20040921
  Transmission Date: 20050328
  Serious: No
  Sender: FDA-Public Use
  Company Number: 2003-05-4473

PATIENT
  Age: 58 Year
  Sex: Female
  Weight: 95.2554 kg

DRUGS (4)
  1. CLARINEX [Suspect]
     Dosage: 5 MG ORAL
     Route: 048
     Dates: start: 20030402, end: 20030404
  2. BENADRYL [Concomitant]
  3. IBUPROFEN [Concomitant]
  4. MAXAIR [Concomitant]

REACTIONS (1)
  - PHOTOPHOBIA [None]
